FAERS Safety Report 5721758-5 (Version None)
Quarter: 2008Q2

REPORT INFORMATION
  Report Type: 
  Country: None (occurrence: None)
  Receive Date: 20080429
  Receipt Date: 20080328
  Transmission Date: 20081010
  Serious: No
  Sender: FDA-Public Use
  Company Number: US-ASTRAZENECA-2007UW09349

PATIENT
  Age: 59 Year
  Sex: Female
  Weight: 104.5 kg

DRUGS (4)
  1. NEXIUM [Suspect]
     Indication: GASTROOESOPHAGEAL REFLUX DISEASE
     Route: 048
     Dates: start: 20061204, end: 20070425
  2. NEXIUM [Suspect]
     Indication: STOMACH DISCOMFORT
     Route: 048
     Dates: start: 20061204, end: 20070425
  3. DIAZIDE [Concomitant]
     Indication: HYPERTENSION
     Route: 048
     Dates: start: 20030403
  4. ASPIRIN [Concomitant]

REACTIONS (2)
  - AGEUSIA [None]
  - ANOSMIA [None]
